FAERS Safety Report 16366480 (Version 1)
Quarter: 2019Q2

REPORT INFORMATION
  Report Type: Spontaneous
  Country: US (occurrence: US)
  Receive Date: 20190529
  Receipt Date: 20190529
  Transmission Date: 20190711
  Serious: No
  Sender: FDA-Public Use
  Company Number: US-HORIZON-DUE-0303-2019

PATIENT
  Sex: Male

DRUGS (1)
  1. DUEXIS [Suspect]
     Active Substance: FAMOTIDINE\IBUPROFEN
     Indication: SPINAL STENOSIS
     Dates: start: 2016, end: 201609

REACTIONS (3)
  - Arthralgia [Unknown]
  - Off label use [Unknown]
  - Therapy cessation [Unknown]
